FAERS Safety Report 24695192 (Version 1)
Quarter: 2024Q4

REPORT INFORMATION
  Report Type: Spontaneous
  Country: US (occurrence: None)
  Receive Date: 20241204
  Receipt Date: 20241204
  Transmission Date: 20250115
  Serious: No
  Sender: Public
  Company Number: None

PATIENT
  Age: 11 Month

DRUGS (1)
  1. PALIVIZUMAB [Suspect]
     Active Substance: PALIVIZUMAB

REACTIONS (11)
  - Irritability [None]
  - Oxygen saturation decreased [None]
  - Tachycardia [None]
  - Loss of consciousness [None]
  - Cardiac arrest [None]
  - Agonal respiration [None]
  - Pulseless electrical activity [None]
  - Aspiration [None]
  - Respiratory failure [None]
  - Arrhythmia [None]
  - Cardiomyopathy [None]

NARRATIVE: CASE EVENT DATE: 20220122
